FAERS Safety Report 6906666-6 (Version None)
Quarter: 2010Q3

REPORT INFORMATION
  Report Type: 
  Country: None (occurrence: None)
  Receive Date: 20100804
  Receipt Date: 20100729
  Transmission Date: 20110219
  Serious: Yes (Other)
  Sender: FDA-Public Use
  Company Number: AU-WYE-G06480810

PATIENT
  Age: 80 Year
  Sex: Female

DRUGS (1)
  1. PRISTIQ [Suspect]
     Indication: DEPRESSION
     Dosage: 50MG
     Dates: start: 20100301, end: 20100601

REACTIONS (2)
  - MUSCLE RIGIDITY [None]
  - PARKINSON'S DISEASE [None]
